FAERS Safety Report 5517586-6 (Version None)
Quarter: 2007Q4

REPORT INFORMATION
  Report Type: 
  Country: None (occurrence: None)
  Receive Date: 20071114
  Receipt Date: 20071102
  Transmission Date: 20080405
  Serious: Yes (Other)
  Sender: FDA-Public Use
  Company Number: US-PFIZER INC-2007086775

PATIENT
  Age: 41 Year
  Sex: Female

DRUGS (7)
  1. CHANTIX [Suspect]
     Indication: SMOKING CESSATION THERAPY
     Dates: start: 20070101, end: 20070801
  2. MELATONIN [Suspect]
     Indication: SLEEP DISORDER
     Dates: start: 20070101, end: 20070101
  3. OXYCONTIN [Concomitant]
  4. PERCOCET [Concomitant]
  5. XANAX [Concomitant]
  6. TOPAMAX [Concomitant]
     Indication: MIGRAINE
  7. SOMA [Concomitant]

REACTIONS (25)
  - ABNORMAL DREAMS [None]
  - ANGER [None]
  - BLEPHARITIS [None]
  - CHEST DISCOMFORT [None]
  - CONSTIPATION [None]
  - DECREASED ACTIVITY [None]
  - DRUG INEFFECTIVE [None]
  - DYSGEUSIA [None]
  - DYSPNOEA [None]
  - FEELING ABNORMAL [None]
  - HYPERSOMNIA [None]
  - HYPERVENTILATION [None]
  - LOGORRHOEA [None]
  - MEMORY IMPAIRMENT [None]
  - MIDDLE INSOMNIA [None]
  - MOOD SWINGS [None]
  - PARANOID PERSONALITY DISORDER [None]
  - PAROSMIA [None]
  - PERSONALITY CHANGE [None]
  - POLLAKIURIA [None]
  - PRESSURE OF SPEECH [None]
  - PSYCHOMOTOR HYPERACTIVITY [None]
  - SKIN BURNING SENSATION [None]
  - SUSPICIOUSNESS [None]
  - VULVOVAGINAL MYCOTIC INFECTION [None]
